FAERS Safety Report 8934499 (Version 1)
Quarter: 2012Q4

REPORT INFORMATION
  Report Type: 
  Country: US (occurrence: US)
  Receive Date: 20121129
  Receipt Date: 20121129
  Transmission Date: 20130627
  Serious: No
  Sender: FDA-Public Use
  Company Number: US-GLAXOSMITHKLINE-A0956921A

PATIENT
  Age: 55 Year
  Sex: Female

DRUGS (10)
  1. FLOVENT [Suspect]
     Indication: ASTHMA
     Dosage: 1PUFF Twice per day
     Route: 055
     Dates: start: 201012
  2. HYDROXYUREA [Concomitant]
  3. LEVOTHROID [Concomitant]
  4. PREDNISONE [Concomitant]
  5. OMEPRAZOLE [Concomitant]
  6. SIMVASTATIN [Concomitant]
  7. VENLAFAXINE [Concomitant]
  8. CALCIUM + VITAMIN B [Concomitant]
  9. VITAMIN C [Concomitant]
  10. MULTI VITAMIN [Concomitant]

REACTIONS (3)
  - Chest discomfort [Unknown]
  - Inhalation therapy [Unknown]
  - Drug ineffective [Unknown]
